FAERS Safety Report 9066920 (Version 1)
Quarter: 2013Q1

REPORT INFORMATION
  Report Type: Report from Study
  Country: US (occurrence: US)
  Receive Date: 20130131
  Receipt Date: 20130131
  Transmission Date: 20140127
  Serious: Yes (Hospitalization)
  Sender: FDA-Public Use
  Company Number: US-ABBOTT-12P-163-1009356-00

PATIENT
  Sex: Female

DRUGS (15)
  1. HUMIRA PEN [Suspect]
     Indication: RHEUMATOID ARTHRITIS
     Dates: start: 2002
  2. HUMIRA PEN [Suspect]
     Indication: CROHN^S DISEASE
  3. IPRATROPIUM BROMIDE [Concomitant]
     Indication: CHRONIC OBSTRUCTIVE PULMONARY DISEASE
  4. ALBUTEROL [Concomitant]
     Indication: CHRONIC OBSTRUCTIVE PULMONARY DISEASE
  5. VENTOLIN [Concomitant]
     Indication: CHRONIC OBSTRUCTIVE PULMONARY DISEASE
  6. SINGULAIR [Concomitant]
     Indication: HYPERSENSITIVITY
  7. TRAMADOL [Concomitant]
     Indication: RHEUMATOID ARTHRITIS
  8. ARAVA [Concomitant]
     Indication: RHEUMATOID ARTHRITIS
  9. PLAQUENIL [Concomitant]
     Indication: RHEUMATOID ARTHRITIS
  10. PROMETHAZINE [Concomitant]
     Indication: CROHN^S DISEASE
  11. DICYCLOMINE [Concomitant]
     Indication: CROHN^S DISEASE
  12. PRILOSEC [Concomitant]
     Indication: CROHN^S DISEASE
  13. DALIRESP [Concomitant]
     Indication: PRODUCT USED FOR UNKNOWN INDICATION
  14. ADVAIR [Concomitant]
     Indication: PRODUCT USED FOR UNKNOWN INDICATION
  15. SPIRIVA INHALER [Concomitant]
     Indication: PRODUCT USED FOR UNKNOWN INDICATION

REACTIONS (3)
  - Myocardial infarction [Recovered/Resolved]
  - Blood creatinine abnormal [Recovered/Resolved]
  - Emotional distress [Unknown]
